FAERS Safety Report 10032423 (Version 2)
Quarter: 2014Q2

REPORT INFORMATION
  Report Type: Spontaneous
  Country: JP (occurrence: None)
  Receive Date: 20140320
  Receipt Date: 20140529
  Transmission Date: 20141212
  Serious: Yes (Other)
  Sender: FDA-Public Use
  Company Number: JP-20140051

PATIENT
  Age: 74 Year
  Sex: Female

DRUGS (3)
  1. LIPIODOL ULTRA FLUIDE (ETHIODIZED OIL) [Suspect]
     Indication: THERAPEUTIC EMBOLISATION
     Dosage: INTRA-ARTERIAL
     Route: 013
     Dates: start: 20130702, end: 20130702
  2. FARMORUBICIN (EPIRUBICIN HYDROCHLORIDE) (EPIRUBICIN HYDROCHLORIDE) [Concomitant]
  3. GELFOAM (ABSORBABLE GELATIN SPONGE (ABSORBABLE GELATIN SPONGE) [Concomitant]

REACTIONS (2)
  - Off label use [None]
  - Cholecystitis infective [None]
